FAERS Safety Report 5220128-6 (Version None)
Quarter: 2007Q1

REPORT INFORMATION
  Report Type: 
  Country: None (occurrence: None)
  Receive Date: 20070124
  Receipt Date: 20070124
  Transmission Date: 20070707
  Serious: Yes (Life-Threatening, Hospitalization, Other)
  Sender: FDA-Public Use
  Company Number: None

PATIENT
  Sex: Female
  Weight: 63.5036 kg

DRUGS (1)
  1. ENBREL [Suspect]
     Indication: RHEUMATOID ARTHRITIS
     Dosage: 1 SHOT WEEKLY IM
     Route: 030
     Dates: start: 20050901, end: 20061001

REACTIONS (25)
  - ABASIA [None]
  - ABNORMAL BEHAVIOUR [None]
  - AREFLEXIA [None]
  - BALANCE DISORDER [None]
  - BRAIN STEM SYNDROME [None]
  - CEREBROVASCULAR ACCIDENT [None]
  - CHOKING [None]
  - COORDINATION ABNORMAL [None]
  - DIPLOPIA [None]
  - DYSARTHRIA [None]
  - EDUCATIONAL PROBLEM [None]
  - FATIGUE [None]
  - GLIOMA [None]
  - HEADACHE [None]
  - HYPERTENSION [None]
  - HYPOAESTHESIA FACIAL [None]
  - INCONTINENCE [None]
  - LOSS OF EMPLOYMENT [None]
  - MEMORY IMPAIRMENT [None]
  - NERVOUS SYSTEM DISORDER [None]
  - PARAESTHESIA [None]
  - PERSONALITY CHANGE [None]
  - PYREXIA [None]
  - RENAL DISORDER [None]
  - WEIGHT DECREASED [None]
